FAERS Safety Report 7999068-5 (Version None)
Quarter: 2011Q4

REPORT INFORMATION
  Report Type: 
  Country: None (occurrence: None)
  Receive Date: 20111221
  Receipt Date: 20111213
  Transmission Date: 20120403
  Serious: Yes (Hospitalization, Other)
  Sender: FDA-Public Use
  Company Number: CA-ROCHE-GNE321511

PATIENT
  Sex: Female

DRUGS (9)
  1. SINGULAIR [Concomitant]
     Indication: PRODUCT USED FOR UNKNOWN INDICATION
  2. NORVASC [Concomitant]
  3. CALCIUM PHOSPHATE [Concomitant]
  4. ATIVAN [Concomitant]
  5. ASCORBIC ACID [Concomitant]
  6. SYMBICORT [Concomitant]
     Indication: PRODUCT USED FOR UNKNOWN INDICATION
  7. XOLAIR [Suspect]
     Indication: ASTHMA
     Route: 058
     Dates: start: 20110516
  8. SPIRIVA [Concomitant]
  9. ERGOCALCIFEROL [Concomitant]

REACTIONS (6)
  - HERPES ZOSTER [None]
  - FIBULA FRACTURE [None]
  - ASTHMA [None]
  - ACCIDENT [None]
  - ANKLE FRACTURE [None]
  - BRONCHITIS [None]
